FAERS Safety Report 16525466 (Version 1)
Quarter: 2019Q3

REPORT INFORMATION
  Report Type: Spontaneous
  Country: US (occurrence: US)
  Receive Date: 20190522
  Receipt Date: 20190522
  Transmission Date: 20191004
  Serious: Yes (Life-Threatening, Disabling, Other)
  Sender: FDA-Public Use
  Company Number: None

PATIENT
  Age: 62 Year
  Sex: Female
  Weight: 68.04 kg

DRUGS (1)
  1. EFFEXOR [Suspect]
     Active Substance: VENLAFAXINE HYDROCHLORIDE
     Indication: OBSESSIVE-COMPULSIVE DISORDER
     Dates: start: 1996, end: 2012

REACTIONS (15)
  - Panic reaction [None]
  - Nightmare [None]
  - Neurotoxicity [None]
  - Insomnia [None]
  - Anhedonia [None]
  - Personality change [None]
  - Anxiety [None]
  - Brain injury [None]
  - Emotional poverty [None]
  - Amnesia [None]
  - Cognitive disorder [None]
  - Suicidal ideation [None]
  - Post-traumatic stress disorder [None]
  - Drug withdrawal syndrome [None]
  - Apathy [None]
